FAERS Safety Report 5957471-9 (Version None)
Quarter: 2008Q4

REPORT INFORMATION
  Report Type: 
  Country: None (occurrence: None)
  Receive Date: 20081114
  Receipt Date: 20081110
  Transmission Date: 20090506
  Serious: Yes (Other)
  Sender: FDA-Public Use
  Company Number: 2008SP020515

PATIENT
  Sex: Female

DRUGS (2)
  1. INTRON A [Suspect]
     Indication: DRUG USE FOR UNKNOWN INDICATION
     Dosage: TIW; SC
     Route: 058
  2. PAXIL [Suspect]
     Indication: DRUG USE FOR UNKNOWN INDICATION
     Dosage: 20 MG; QD; PO
     Route: 048

REACTIONS (3)
  - COGNITIVE DISORDER [None]
  - MENTAL STATUS CHANGES [None]
  - SEROTONIN SYNDROME [None]
